FAERS Safety Report 9052985 (Version 4)
Quarter: 2013Q2

REPORT INFORMATION
  Report Type: Spontaneous
  Country: US (occurrence: US)
  Receive Date: 20130208
  Receipt Date: 20130603
  Transmission Date: 20140414
  Serious: Yes (Hospitalization, Other)
  Sender: FDA-Public Use
  Company Number: US-BIOGENIDEC-2013BI011648

PATIENT
  Age: 61 Year
  Sex: Male

DRUGS (7)
  1. TYSABRI [Suspect]
     Indication: MULTIPLE SCLEROSIS
     Route: 042
     Dates: start: 20050110
  2. TYSABRI [Suspect]
     Indication: MULTIPLE SCLEROSIS
     Route: 042
     Dates: start: 20060821, end: 20121221
  3. TYSABRI [Suspect]
     Indication: MULTIPLE SCLEROSIS
     Route: 042
     Dates: start: 201305
  4. AMANTADINE HCL [Concomitant]
     Route: 048
  5. BACLOFEN [Concomitant]
     Route: 048
  6. DIAZEPAM [Concomitant]
     Route: 048
  7. PROVIGIL [Concomitant]
     Route: 048

REACTIONS (5)
  - Myocardial infarction [Recovered/Resolved]
  - Cardiac failure congestive [Unknown]
  - Pneumonia [Recovered/Resolved]
  - Pulmonary congestion [Recovered/Resolved]
  - Muscle spasms [Recovered/Resolved]
